FAERS Safety Report 7571969-1 (Version None)
Quarter: 2011Q2

REPORT INFORMATION
  Report Type: 
  Country: None (occurrence: None)
  Receive Date: 20110624
  Receipt Date: 20110616
  Transmission Date: 20111010
  Serious: Yes (Other)
  Sender: FDA-Public Use
  Company Number: US-US-EMD SERONO, INC.-7065773

PATIENT
  Sex: Female

DRUGS (3)
  1. UNSPECIFIED ATTENTION DEFICIT HYPERACTIVITY DISORDER MEDICATION [Concomitant]
     Indication: FATIGUE
  2. GEMFIBROZIL [Concomitant]
     Dates: start: 20110401
  3. REBIF [Suspect]
     Indication: PRODUCT USED FOR UNKNOWN INDICATION
     Route: 058
     Dates: start: 20101227

REACTIONS (3)
  - DIABETES MELLITUS [None]
  - DIZZINESS [None]
  - EPISTAXIS [None]
